FAERS Safety Report 25450682 (Version 1)
Quarter: 2025Q2

REPORT INFORMATION
  Report Type: Spontaneous
  Country: US (occurrence: US)
  Receive Date: 20250618
  Receipt Date: 20250618
  Transmission Date: 20250717
  Serious: Yes (Other)
  Sender: BRISTOL-MYERS SQUIBB COMPANY
  Company Number: US-BRISTOL-MYERS SQUIBB COMPANY-2025-085536

PATIENT

DRUGS (1)
  1. KRAZATI [Suspect]
     Active Substance: ADAGRASIB
     Indication: Product used for unknown indication

REACTIONS (3)
  - Electrocardiogram QT prolonged [Unknown]
  - Fall [Unknown]
  - Ejection fraction decreased [Unknown]
